FAERS Safety Report 7450636-9 (Version None)
Quarter: 2011Q2

REPORT INFORMATION
  Report Type: 
  Country: None (occurrence: None)
  Receive Date: 20110502
  Receipt Date: 20100514
  Transmission Date: 20111010
  Serious: No
  Sender: FDA-Public Use
  Company Number: US-BAYER-201023295NA

PATIENT
  Sex: Female

DRUGS (2)
  1. NUVARING [Concomitant]
     Indication: CONTRACEPTION
  2. YAZ [Suspect]
     Indication: CONTRACEPTION

REACTIONS (2)
  - DIARRHOEA [None]
  - ABDOMINAL PAIN LOWER [None]
